FAERS Safety Report 26162715 (Version 1)
Quarter: 2025Q4

REPORT INFORMATION
  Report Type: Spontaneous
  Country: EU (occurrence: EU)
  Receive Date: 20251216
  Receipt Date: 20251216
  Transmission Date: 20260118
  Serious: Yes (Other)
  Sender: ALEXION PHARMACEUTICALS
  Company Number: EU-AstraZeneca-CH-01011446A

PATIENT
  Age: 38 Year

DRUGS (1)
  1. LYNPARZA [Suspect]
     Active Substance: OLAPARIB
     Indication: Triple negative breast cancer
     Dosage: UNK
     Route: 065

REACTIONS (5)
  - Metastases to chest wall [Unknown]
  - Metastases to lymph nodes [Unknown]
  - Breast cancer recurrent [Unknown]
  - BRCA1 gene mutation [Unknown]
  - Malignant neoplasm progression [Unknown]
